FAERS Safety Report 9155943 (Version 2)
Quarter: 2013Q2

REPORT INFORMATION
  Report Type: Spontaneous
  Country: US (occurrence: US)
  Receive Date: 20130311
  Receipt Date: 20130429
  Transmission Date: 20140414
  Serious: Yes (Life-Threatening, Hospitalization, Other)
  Sender: FDA-Public Use
  Company Number: US-PFIZER INC-2013081020

PATIENT
  Age: 58 Year
  Sex: Male
  Weight: 122 kg

DRUGS (2)
  1. LIPITOR [Suspect]
     Dosage: UNK
  2. ATORVASTATIN CALCIUM [Suspect]
     Indication: CEREBROVASCULAR ACCIDENT
     Dosage: 80 MG, 1X/DAY
     Dates: start: 20130228, end: 20130307

REACTIONS (6)
  - Respiratory disorder [Unknown]
  - Haemorrhagic stroke [Unknown]
  - Glossitis [Unknown]
  - Angioedema [Unknown]
  - Glossitis [Unknown]
  - Protrusion tongue [Unknown]
